FAERS Safety Report 18924141 (Version 2)
Quarter: 2022Q2

REPORT INFORMATION
  Report Type: Spontaneous
  Country: FR (occurrence: FR)
  Receive Date: 20210222
  Receipt Date: 20220418
  Transmission Date: 20220721
  Serious: Yes (Other)
  Sender: FDA-Public Use
  Company Number: FR-OTSUKA-2021_004810

PATIENT
  Sex: Female

DRUGS (2)
  1. ABILIFY [Suspect]
     Active Substance: ARIPIPRAZOLE
     Indication: Schizophrenia
     Dosage: 20 MG, QD
     Route: 048
  2. ABILIFY MAINTENA [Suspect]
     Active Substance: ARIPIPRAZOLE
     Indication: Schizophrenia
     Dosage: 300 MG, UNK
     Route: 065

REACTIONS (5)
  - Gestational diabetes [Not Recovered/Not Resolved]
  - Morning sickness [Unknown]
  - Drug intolerance [Unknown]
  - Maternal exposure during pregnancy [Unknown]
  - Underdose [Unknown]
